FAERS Safety Report 17817439 (Version 1)
Quarter: 2020Q2

REPORT INFORMATION
  Report Type: Spontaneous
  Country: TR (occurrence: TR)
  Receive Date: 20200522
  Receipt Date: 20200522
  Transmission Date: 20200714
  Serious: Yes (Hospitalization)
  Sender: FDA-Public Use
  Company Number: TR-CELLTRION-2020-TR-000076

PATIENT
  Age: 53 Year
  Sex: Female

DRUGS (2)
  1. PREGABALIN (NON-SPECIFIC) [Suspect]
     Active Substance: PREGABALIN
     Indication: FIBROMYALGIA
     Dosage: 150 MG DAILY
     Route: 065
  2. IRBESARTAN PLUS THIAZIDE [Concomitant]
     Indication: HYPERTENSION
     Dosage: 300/12.5 MG DAILY

REACTIONS (1)
  - Parkinsonism [Recovered/Resolved]
